FAERS Safety Report 17574818 (Version 1)
Quarter: 2020Q1

REPORT INFORMATION
  Report Type: Spontaneous
  Country: US (occurrence: US)
  Receive Date: 20200324
  Receipt Date: 20200324
  Transmission Date: 20200409
  Serious: No
  Sender: FDA-Public Use
  Company Number: US-CIPLA LTD.-2020US01065

PATIENT

DRUGS (1)
  1. SERTRALINE [Suspect]
     Active Substance: SERTRALINE HYDROCHLORIDE
     Indication: ANXIETY
     Dosage: 25 MILLIGRAM (ONE PILL IN THE EVENING)
     Route: 048
     Dates: start: 20200203

REACTIONS (7)
  - Chills [Unknown]
  - Malaise [Not Recovered/Not Resolved]
  - Asthenia [Unknown]
  - Unevaluable event [Unknown]
  - Tremor [Unknown]
  - Nausea [Unknown]
  - Palpitations [Unknown]

NARRATIVE: CASE EVENT DATE: 20200203
